FAERS Safety Report 8093380-X (Version None)
Quarter: 2012Q1

REPORT INFORMATION
  Report Type: 
  Country: None (occurrence: None)
  Receive Date: 20120131
  Receipt Date: 20120124
  Transmission Date: 20120608
  Serious: Yes (Life-Threatening, Other)
  Sender: FDA-Public Use
  Company Number: BR-PFIZER INC-2012021261

PATIENT
  Age: 56 Year
  Sex: Female

DRUGS (3)
  1. AMITRIPTYLINE [Concomitant]
     Indication: FIBROMYALGIA
     Dosage: 25 MG
  2. LYRICA [Suspect]
     Indication: SCLERODERMA
     Dosage: 150 MG, 3X/DAY
     Route: 048
     Dates: start: 20100114
  3. MORPHINE [Concomitant]
     Indication: PAIN
     Dosage: UNK

REACTIONS (6)
  - FEELING ABNORMAL [None]
  - CARDIAC ARREST [None]
  - POLYNEUROPATHY [None]
  - GAIT DISTURBANCE [None]
  - SCLERODERMA [None]
  - PAIN [None]
